FAERS Safety Report 23935893 (Version 2)
Quarter: 2024Q2

REPORT INFORMATION
  Report Type: Spontaneous
  Country: US (occurrence: US)
  Receive Date: 20240604
  Receipt Date: 20240610
  Transmission Date: 20240716
  Serious: No
  Sender: FDA-Public Use
  Company Number: US-LEO Pharma-370850

PATIENT
  Age: 38 Year
  Sex: Female

DRUGS (1)
  1. ADBRY [Suspect]
     Active Substance: TRALOKINUMAB-LDRM
     Indication: Dermatitis
     Dosage: REPORTED AS ONGOING
     Route: 058
     Dates: start: 202402

REACTIONS (4)
  - Erythema [Unknown]
  - Swelling face [Unknown]
  - Therapeutic product effect incomplete [Unknown]
  - Androgenetic alopecia [Unknown]
